FAERS Safety Report 13097121 (Version 7)
Quarter: 2019Q2

REPORT INFORMATION
  Report Type: Spontaneous
  Country: US (occurrence: US)
  Receive Date: 20170109
  Receipt Date: 20190610
  Transmission Date: 20190711
  Serious: Yes (Hospitalization, Other)
  Sender: FDA-Public Use
  Company Number: US-PFIZER INC-2017006665

PATIENT
  Sex: Female
  Weight: 73 kg

DRUGS (1)
  1. NEURONTIN [Suspect]
     Active Substance: GABAPENTIN
     Dosage: UNK

REACTIONS (5)
  - Pneumonia [Unknown]
  - Insomnia [Unknown]
  - Gait disturbance [Unknown]
  - Agitation [Unknown]
  - Muscular weakness [Unknown]
